FAERS Safety Report 26059522 (Version 1)
Quarter: 2025Q4

REPORT INFORMATION
  Report Type: Spontaneous
  Country: US (occurrence: US)
  Receive Date: 20251118
  Receipt Date: 20251118
  Transmission Date: 20260118
  Serious: Yes (Other)
  Sender: ELI LILLY AND COMPANY
  Company Number: US-ELI_LILLY_AND_COMPANY-US202511010829

PATIENT
  Sex: Female

DRUGS (1)
  1. HUMULIN R U-500 [Interacting]
     Active Substance: INSULIN HUMAN
     Indication: Product used for unknown indication
     Dosage: UNK UNK, UNKNOWN
     Route: 065

REACTIONS (3)
  - Thyroid cancer [Unknown]
  - Cardiac failure congestive [Unknown]
  - Pulmonary oedema [Unknown]
